FAERS Safety Report 6104130-8 (Version None)
Quarter: 2009Q1

REPORT INFORMATION
  Report Type: 
  Country: None (occurrence: None)
  Receive Date: 20090305
  Receipt Date: 20090302
  Transmission Date: 20090719
  Serious: Yes (Hospitalization)
  Sender: FDA-Public Use
  Company Number: US-ELI_LILLY_AND_COMPANY-US200901005029

PATIENT
  Sex: Female

DRUGS (3)
  1. BYETTA [Suspect]
     Dosage: UNK, UNKNOWN
     Route: 058
  2. HUMALOG [Concomitant]
     Dosage: UNK, UNKNOWN
     Dates: start: 20080701
  3. ACTOS [Concomitant]
     Dosage: UNK, UNKNOWN

REACTIONS (1)
  - CARDIAC FAILURE CONGESTIVE [None]
